FAERS Safety Report 6726407-5 (Version None)
Quarter: 2010Q2

REPORT INFORMATION
  Report Type: 
  Country: None (occurrence: None)
  Receive Date: 20100514
  Receipt Date: 20100504
  Transmission Date: 20101027
  Serious: Yes (Other)
  Sender: FDA-Public Use
  Company Number: D0067544A

PATIENT
  Age: 8 Year
  Sex: Male

DRUGS (4)
  1. ATMADISC MITE [Suspect]
     Dosage: 150MCG UNKNOWN
     Route: 055
  2. SALBUTAMOL [Suspect]
     Route: 055
  3. BUDESONIDE [Suspect]
     Route: 065
  4. INSULIN [Concomitant]
     Route: 065

REACTIONS (2)
  - BLOOD GLUCOSE INCREASED [None]
  - DIABETES MELLITUS INADEQUATE CONTROL [None]
